FAERS Safety Report 4978134-2 (Version None)
Quarter: 2006Q2

REPORT INFORMATION
  Report Type: 
  Country: None (occurrence: None)
  Receive Date: 20060417
  Receipt Date: 20060330
  Transmission Date: 20061013
  Serious: Yes (Hospitalization)
  Sender: FDA-Public Use
  Company Number: 2006S1002823

PATIENT
  Age: 26 Year
  Sex: Male

DRUGS (4)
  1. CLOZAPINE [Suspect]
     Indication: SCHIZOPHRENIA
     Dosage: 600  MG; HS; ORAL;  100 MG; QAM; ORAL;  200 MG; HS; ORAL
     Route: 048
     Dates: start: 20050101
  2. CLOZAPINE [Suspect]
     Indication: SCHIZOPHRENIA
     Dosage: 600  MG; HS; ORAL;  100 MG; QAM; ORAL;  200 MG; HS; ORAL
     Route: 048
     Dates: start: 20050101
  3. CLOZAPINE [Suspect]
     Indication: SCHIZOPHRENIA
     Dosage: 600  MG; HS; ORAL;  100 MG; QAM; ORAL;  200 MG; HS; ORAL
     Route: 048
     Dates: start: 20050101
  4. DEPAKOTE [Suspect]
     Indication: CONVULSION
     Dosage: 250 MG; QAM; ORAL;  1000 MG; HS; ORAL
     Route: 048

REACTIONS (6)
  - ANTICONVULSANT DRUG LEVEL DECREASED [None]
  - CONVULSION [None]
  - DISEASE RECURRENCE [None]
  - DRUG EFFECT DECREASED [None]
  - GRANULOCYTOPENIA [None]
  - MENTAL DISORDER [None]
